FAERS Safety Report 6433388-0 (Version None)
Quarter: 2009Q4

REPORT INFORMATION
  Report Type: 
  Country: None (occurrence: None)
  Receive Date: 20091106
  Receipt Date: 20091106
  Transmission Date: 20100525
  Serious: Yes (Disabling, Other)
  Sender: FDA-Public Use
  Company Number: None

PATIENT
  Age: 27 Year
  Sex: Female
  Weight: 91.6266 kg

DRUGS (1)
  1. MIRENA [Suspect]
     Dosage: 1 1 INTRA-UTERINE
     Route: 015
     Dates: start: 20090303, end: 20091005

REACTIONS (3)
  - DEVICE EXPULSION [None]
  - DYSPAREUNIA [None]
  - WEIGHT INCREASED [None]
